FAERS Safety Report 4389681-9 (Version None)
Quarter: 2004Q2

REPORT INFORMATION
  Report Type: 
  Country: None (occurrence: None)
  Receive Date: 20040629
  Receipt Date: 20040217
  Transmission Date: 20050107
  Serious: Yes (Hospitalization)
  Sender: FDA-Public Use
  Company Number: US-JNJFOC-20031004754

PATIENT
  Age: 76 Year
  Sex: Male

DRUGS (6)
  1. DURAGESIC [Suspect]
     Indication: CANCER PAIN
     Dosage: 100 UG/HR, 1 IN 72 HOUR, TRANSDERMAL : 50 UG/HR, 1 IN 72 HOUR, TRANSDERMAL
     Route: 062
     Dates: start: 20031004
  2. DURAGESIC [Suspect]
     Indication: CANCER PAIN
     Dosage: 100 UG/HR, 1 IN 72 HOUR, TRANSDERMAL : 50 UG/HR, 1 IN 72 HOUR, TRANSDERMAL
     Route: 062
     Dates: start: 20031011
  3. TAXOTERE [Concomitant]
  4. CAMPTOSAR [Concomitant]
  5. DECADRON [Concomitant]
  6. OXYFAST (PERCOCET-5) [Concomitant]

REACTIONS (7)
  - ABDOMINAL PAIN UPPER [None]
  - AGITATION [None]
  - CONFUSIONAL STATE [None]
  - DIFFICULTY IN WALKING [None]
  - HYPERVIGILANCE [None]
  - INSOMNIA [None]
  - VOMITING [None]
